FAERS Safety Report 4430460-1 (Version None)
Quarter: 2004Q3

REPORT INFORMATION
  Report Type: 
  Country: None (occurrence: None)
  Receive Date: 20040721
  Receipt Date: 20040520
  Transmission Date: 20050211
  Serious: Yes (Other)
  Sender: FDA-Public Use
  Company Number: WAES 0203USA03169

PATIENT
  Age: 52 Year
  Sex: Male

DRUGS (4)
  1. VIOXX [Suspect]
     Indication: ARTHRITIS
     Dosage: PO
  2. VIOXX [Suspect]
     Indication: PAIN
     Dosage: PO
  3. HYDRODIURIL [Concomitant]
  4. FUROSEMIDE [Concomitant]

REACTIONS (1)
  - RENAL FAILURE ACUTE [None]
